FAERS Safety Report 5194516-0 (Version None)
Quarter: 2006Q4

REPORT INFORMATION
  Report Type: 
  Country: None (occurrence: None)
  Receive Date: 20061226
  Receipt Date: 20061208
  Transmission Date: 20070319
  Serious: Yes (Other)
  Sender: FDA-Public Use
  Company Number: ENT 2006-0173

PATIENT
  Age: 35 Year
  Sex: Male

DRUGS (3)
  1. COMTAN [Suspect]
     Indication: PARKINSON'S DISEASE
     Dosage: 200MG, Q6H ORAL
     Route: 048
     Dates: start: 20040101
  2. CARBIDOPA AND LEVODOPA [Concomitant]
  3. AMANTADINE HCL [Concomitant]

REACTIONS (7)
  - ARTHRALGIA [None]
  - BACK PAIN [None]
  - CONFUSIONAL STATE [None]
  - DYSPNOEA [None]
  - GASTROINTESTINAL MOTILITY DISORDER [None]
  - MUSCLE RIGIDITY [None]
  - PAIN [None]
